FAERS Safety Report 6128363-X (Version None)
Quarter: 2009Q1

REPORT INFORMATION
  Report Type: 
  Country: None (occurrence: None)
  Receive Date: 20090323
  Receipt Date: 20090316
  Transmission Date: 20090719
  Serious: Yes (Other)
  Sender: FDA-Public Use
  Company Number: D0060898A

PATIENT
  Age: 41 Year
  Sex: Male
  Weight: 100 kg

DRUGS (1)
  1. LAMICTAL [Suspect]
     Indication: EPILEPSY
     Dosage: 150MG FOUR TIMES PER DAY
     Route: 048

REACTIONS (4)
  - HEPATIC STEATOSIS [None]
  - LEUKOPENIA [None]
  - LUNG DISORDER [None]
  - LYMPHADENOPATHY [None]
